FAERS Safety Report 8904389 (Version 3)
Quarter: 2013Q4

REPORT INFORMATION
  Report Type: Spontaneous
  Country: HU (occurrence: HU)
  Receive Date: 20121112
  Receipt Date: 20131216
  Transmission Date: 20140711
  Serious: Yes (Hospitalization, Other)
  Sender: FDA-Public Use
  Company Number: HU-MERCK-1211HUN003423

PATIENT
  Age: 1 Year
  Sex: Female
  Weight: .99 kg

DRUGS (2)
  1. REBETOL [Suspect]
     Indication: HEPATITIS C
     Dosage: UNK
     Route: 064
     Dates: start: 20111209
  2. PEGINTRON [Suspect]
     Indication: HEPATITIS C
     Dosage: UNK
     Route: 064
     Dates: start: 20111209

REACTIONS (5)
  - Premature baby [Recovered/Resolved]
  - Low birth weight baby [Unknown]
  - Exposure via father [Recovered/Resolved]
  - Pneumonia [Recovering/Resolving]
  - Haemorrhage [Recovered/Resolved]
